FAERS Safety Report 4966185-3 (Version None)
Quarter: 2006Q2

REPORT INFORMATION
  Report Type: 
  Country: None (occurrence: None)
  Receive Date: 20060407
  Receipt Date: 20050803
  Transmission Date: 20061013
  Serious: Yes (Death, Hospitalization)
  Sender: FDA-Public Use
  Company Number: FR-MERCK-0508USA01384

PATIENT
  Age: 76 Year
  Sex: Male

DRUGS (4)
  1. ZOCOR [Suspect]
     Route: 048
     Dates: start: 19910615, end: 20040815
  2. KARDEGIC [Suspect]
     Route: 048
     Dates: start: 19960101
  3. MONICOR [Suspect]
     Route: 048
     Dates: start: 19960101
  4. BISOPROLOL [Suspect]
     Route: 048
     Dates: start: 19960101, end: 20041215

REACTIONS (2)
  - PULMONARY FIBROSIS [None]
  - RESPIRATORY FAILURE [None]
